FAERS Safety Report 24891139 (Version 1)
Quarter: 2025Q1

REPORT INFORMATION
  Report Type: Spontaneous
  Country: US (occurrence: US)
  Receive Date: 20250127
  Receipt Date: 20250127
  Transmission Date: 20250409
  Serious: No
  Sender: SANOFI AVENTIS
  Company Number: US-SA-2025SA021429

PATIENT
  Age: 9 Year
  Sex: Female

DRUGS (7)
  1. TZIELD [Suspect]
     Active Substance: TEPLIZUMAB-MZWV
     Indication: Diabetes prophylaxis
     Dates: start: 20250113, end: 20250113
  2. TZIELD [Suspect]
     Active Substance: TEPLIZUMAB-MZWV
     Dates: start: 20250114, end: 20250114
  3. TZIELD [Suspect]
     Active Substance: TEPLIZUMAB-MZWV
     Dates: start: 20250115, end: 20250115
  4. TZIELD [Suspect]
     Active Substance: TEPLIZUMAB-MZWV
     Dates: start: 20250116, end: 20250116
  5. TZIELD [Suspect]
     Active Substance: TEPLIZUMAB-MZWV
     Dosage: 1091.8 UG, QD
     Dates: start: 20250117, end: 20250118
  6. TZIELD [Suspect]
     Active Substance: TEPLIZUMAB-MZWV
     Dates: start: 20250120
  7. IBUPROFEN [Concomitant]
     Active Substance: IBUPROFEN
     Indication: Premedication
     Route: 048
     Dates: start: 20250113

REACTIONS (6)
  - Influenza like illness [Recovering/Resolving]
  - Throat irritation [Recovering/Resolving]
  - Pyrexia [Recovering/Resolving]
  - Pain [Recovering/Resolving]
  - Chest pain [Unknown]
  - Nausea [Unknown]

NARRATIVE: CASE EVENT DATE: 20250118
